FAERS Safety Report 8339431 (Version 2)
Quarter: 2015Q4

REPORT INFORMATION
  Report Type: Report from Study
  Country: US (occurrence: US)
  Receive Date: 20120117
  Receipt Date: 20151207
  Transmission Date: 20160305
  Serious: Yes (Death, Hospitalization)
  Sender: FDA-Public Use
  Company Number: US-ROCHE-1028964

PATIENT
  Age: 59 Year
  Sex: Male
  Weight: 93.3 kg

DRUGS (19)
  1. PRILOSEC [Concomitant]
     Active Substance: OMEPRAZOLE MAGNESIUM
  2. COMPAZINE [Concomitant]
     Active Substance: PROCHLORPERAZINE MALEATE
     Route: 065
     Dates: start: 20100322
  3. RITUXIMAB [Suspect]
     Active Substance: RITUXIMAB
     Indication: DIFFUSE LARGE B-CELL LYMPHOMA
     Dosage: 48 HOUR BEFORE FIRST CYCLE
     Route: 042
  4. MELPHALAN [Suspect]
     Active Substance: MELPHALAN
     Indication: DIFFUSE LARGE B-CELL LYMPHOMA
     Route: 065
     Dates: start: 20100907, end: 20100907
  5. DEXAMETHASONE. [Concomitant]
     Active Substance: DEXAMETHASONE
     Route: 065
     Dates: start: 20100902, end: 20100909
  6. INOTUZUMAB OZOGAMICIN [Suspect]
     Active Substance: INOTUZUMAB OZOGAMICIN
     Indication: DIFFUSE LARGE B-CELL LYMPHOMA
     Route: 042
  7. SIMVASTATIN. [Concomitant]
     Active Substance: SIMVASTATIN
  8. RITUXIMAB [Suspect]
     Active Substance: RITUXIMAB
     Dosage: ON DAY 1 OF THE CYCLE
     Route: 042
  9. CARMUSTINE [Suspect]
     Active Substance: CARMUSTINE
     Indication: DIFFUSE LARGE B-CELL LYMPHOMA
     Route: 065
     Dates: start: 20100902, end: 20100902
  10. FLUOXETINE [Concomitant]
     Active Substance: FLUOXETINE HYDROCHLORIDE
  11. LORAZEPAM. [Concomitant]
     Active Substance: LORAZEPAM
  12. ETOPOSIDE. [Suspect]
     Active Substance: ETOPOSIDE
     Indication: DIFFUSE LARGE B-CELL LYMPHOMA
     Route: 065
     Dates: start: 20100903, end: 20100903
  13. ONDANSETRON [Concomitant]
     Active Substance: ONDANSETRON
     Route: 065
     Dates: start: 20100902, end: 20100909
  14. LISINOPRIL. [Concomitant]
     Active Substance: LISINOPRIL
     Route: 065
     Dates: start: 20100910
  15. VALTREX [Concomitant]
     Active Substance: VALACYCLOVIR HYDROCHLORIDE
     Route: 065
     Dates: start: 20100910
  16. LASIX [Concomitant]
     Active Substance: FUROSEMIDE
     Route: 065
     Dates: start: 20100910
  17. ACTIGALL [Concomitant]
     Active Substance: URSODIOL
     Route: 065
     Dates: start: 20100831
  18. VANCOMYCIN [Concomitant]
     Active Substance: VANCOMYCIN
     Route: 065
     Dates: start: 20100909, end: 20100919
  19. CYTARABINE. [Suspect]
     Active Substance: CYTARABINE
     Indication: DIFFUSE LARGE B-CELL LYMPHOMA
     Route: 065
     Dates: start: 20100903, end: 20100906

REACTIONS (3)
  - Cytomegalovirus infection [Fatal]
  - Venoocclusive liver disease [Not Recovered/Not Resolved]
  - Renal failure [Fatal]

NARRATIVE: CASE EVENT DATE: 20100916
